FAERS Safety Report 12613899 (Version 4)
Quarter: 2016Q3

REPORT INFORMATION
  Report Type: Spontaneous
  Country: US (occurrence: US)
  Receive Date: 20160802
  Receipt Date: 20160808
  Transmission Date: 20161109
  Serious: Yes (Other)
  Sender: FDA-Public Use
  Company Number: US-PFIZER INC-2016361551

PATIENT
  Sex: Female

DRUGS (3)
  1. TIKOSYN [Suspect]
     Active Substance: DOFETILIDE
     Dosage: 125 UG, UNK
  2. TIKOSYN [Suspect]
     Active Substance: DOFETILIDE
     Dosage: 500 UG, UNK
  3. TIKOSYN [Suspect]
     Active Substance: DOFETILIDE
     Indication: ATRIAL FIBRILLATION
     Dosage: 250 UG, UNK

REACTIONS (9)
  - Condition aggravated [Unknown]
  - Dyspnoea [Unknown]
  - Heart rate decreased [Unknown]
  - Bradycardia [Unknown]
  - Choking [Unknown]
  - Pruritus generalised [Unknown]
  - Ventricular extrasystoles [Unknown]
  - Polydipsia [Unknown]
  - Cough [Not Recovered/Not Resolved]
